FAERS Safety Report 7199990-6 (Version None)
Quarter: 2010Q4

REPORT INFORMATION
  Report Type: 
  Country: None (occurrence: None)
  Receive Date: 20101228
  Receipt Date: 20101015
  Transmission Date: 20110411
  Serious: No
  Sender: FDA-Public Use
  Company Number: US-MYLANLABS-2010S1019157

PATIENT
  Age: 54 Year
  Sex: Female
  Weight: 51.26 kg

DRUGS (9)
  1. TOPIRAMATE [Suspect]
     Indication: MIGRAINE
     Route: 048
     Dates: start: 20100901, end: 20101007
  2. PROTONIX [Concomitant]
  3. SINGULAIR [Concomitant]
  4. ALBUTEROL [Concomitant]
  5. SPIRIVA [Concomitant]
  6. INDOCORT [Concomitant]
  7. POTASSIUM [Concomitant]
  8. LASIX [Concomitant]
  9. VITAMIN D [Concomitant]

REACTIONS (3)
  - DIZZINESS [None]
  - INSOMNIA [None]
  - NAUSEA [None]
